FAERS Safety Report 15997536 (Version 1)
Quarter: 2019Q1

REPORT INFORMATION
  Report Type: Spontaneous
  Country: US (occurrence: US)
  Receive Date: 20190222
  Receipt Date: 20190222
  Transmission Date: 20190418
  Serious: No
  Sender: FDA-Public Use
  Company Number: US-SUNOVION-2019SUN000559

PATIENT
  Age: 56 Year
  Sex: Female
  Weight: 58.05 kg

DRUGS (1)
  1. ARCAPTA NEOHALER [Suspect]
     Active Substance: INDACATEROL MALEATE
     Indication: EMPHYSEMA
     Dosage: UNK UNK, QD
     Route: 055
     Dates: start: 201901, end: 20190208

REACTIONS (6)
  - Cough [Unknown]
  - Dyspnoea [Unknown]
  - Secretion discharge [Unknown]
  - Rhinorrhoea [Unknown]
  - Diaphragmalgia [Unknown]
  - Chest discomfort [Unknown]

NARRATIVE: CASE EVENT DATE: 20190207
